FAERS Safety Report 11659120 (Version 1)
Quarter: 2015Q4

REPORT INFORMATION
  Report Type: Spontaneous
  Country: US (occurrence: None)
  Receive Date: 20151023
  Receipt Date: 20151023
  Transmission Date: 20160304
  Serious: Yes (Other)
  Sender: FDA-Public Use
  Company Number: None

PATIENT
  Age: 83 Year
  Sex: Male

DRUGS (1)
  1. TESTOST CYP [Suspect]
     Active Substance: TESTOSTERONE CYPIONATE
     Route: 030

REACTIONS (1)
  - Dizziness [None]

NARRATIVE: CASE EVENT DATE: 20151021
